FAERS Safety Report 6217905-1 (Version None)
Quarter: 2009Q2

REPORT INFORMATION
  Report Type: 
  Country: None (occurrence: None)
  Receive Date: 20090608
  Receipt Date: 20090525
  Transmission Date: 20091009
  Serious: Yes (Hospitalization, Other)
  Sender: FDA-Public Use
  Company Number: US-ELI_LILLY_AND_COMPANY-US200902001004

PATIENT
  Age: 67 Year
  Sex: Male

DRUGS (2)
  1. GEMZAR [Suspect]
     Indication: BLADDER CANCER
     Dosage: UNK, UNK
     Dates: start: 20090101, end: 20090401
  2. CARBOPLATIN [Concomitant]
     Indication: BLADDER CANCER
     Dosage: UNK, UNK
     Dates: start: 20090101, end: 20090401

REACTIONS (18)
  - ABNORMAL DREAMS [None]
  - ALOPECIA [None]
  - ANAEMIA [None]
  - CHILLS [None]
  - DEHYDRATION [None]
  - DIARRHOEA [None]
  - DIZZINESS [None]
  - ERYTHEMA [None]
  - FATIGUE [None]
  - GOUT [None]
  - HEADACHE [None]
  - LETHARGY [None]
  - OEDEMA PERIPHERAL [None]
  - ORTHOSTATIC HYPOTENSION [None]
  - PAIN [None]
  - POLLAKIURIA [None]
  - TRICHORRHEXIS [None]
  - URINARY TRACT INFECTION [None]
